FAERS Safety Report 10169924 (Version 2)
Quarter: 2014Q2

REPORT INFORMATION
  Report Type: Spontaneous
  Country: US (occurrence: US)
  Receive Date: 20140513
  Receipt Date: 20140513
  Transmission Date: 20141212
  Serious: Yes (Other)
  Sender: FDA-Public Use
  Company Number: US-DYAX CORP.-2014DX000050

PATIENT
  Age: 37 Year
  Sex: Female
  Weight: 68.1 kg

DRUGS (3)
  1. KALBITOR [Suspect]
     Indication: HEREDITARY ANGIOEDEMA
     Route: 058
     Dates: start: 20140411, end: 20140411
  2. KALBITOR [Suspect]
     Route: 058
     Dates: start: 20140412, end: 20140412
  3. CINRYZE [Concomitant]
     Indication: HEREDITARY ANGIOEDEMA
     Route: 065

REACTIONS (3)
  - Pruritus [Recovered/Resolved]
  - Crying [Recovered/Resolved]
  - Therapeutic response decreased [Unknown]
